FAERS Safety Report 16668479 (Version 1)
Quarter: 2019Q3

REPORT INFORMATION
  Report Type: Spontaneous
  Country: HN (occurrence: HN)
  Receive Date: 20190805
  Receipt Date: 20190805
  Transmission Date: 20191004
  Serious: Yes (Death, Other)
  Sender: FDA-Public Use
  Company Number: HN-AMERICAN REGENT INC-2019001656

PATIENT
  Age: 64 Year
  Sex: Female

DRUGS (1)
  1. VENOFER [Suspect]
     Active Substance: IRON SUCROSE
     Indication: PRODUCT USED FOR UNKNOWN INDICATION
     Dosage: 200 MILLIGRAM
     Route: 030
     Dates: start: 201906

REACTIONS (7)
  - Administration site infection [Unknown]
  - Administration site extravasation [Unknown]
  - Abscess limb [Unknown]
  - Extremity necrosis [Unknown]
  - Sepsis [Fatal]
  - Compartment syndrome [Unknown]
  - Product use issue [Unknown]

NARRATIVE: CASE EVENT DATE: 2019
